FAERS Safety Report 13998242 (Version 1)
Quarter: 2017Q3

REPORT INFORMATION
  Report Type: Spontaneous
  Country: IT (occurrence: IT)
  Receive Date: 20170921
  Receipt Date: 20170921
  Transmission Date: 20171128
  Serious: Yes (Life-Threatening, Hospitalization)
  Sender: FDA-Public Use
  Company Number: PHHY2017IT136605

PATIENT
  Age: 51 Year
  Sex: Female
  Weight: 72 kg

DRUGS (2)
  1. EVEROLIMUS [Suspect]
     Active Substance: EVEROLIMUS
     Indication: BREAST CANCER
     Dosage: 10 MG, QD
     Route: 048
     Dates: start: 20160706, end: 20170725
  2. EXEMESTANE. [Suspect]
     Active Substance: EXEMESTANE
     Indication: BREAST CANCER
     Dosage: 25 MG, QD
     Route: 048
     Dates: start: 20160706

REACTIONS (2)
  - Cough [Unknown]
  - Cardiac failure acute [Recovering/Resolving]

NARRATIVE: CASE EVENT DATE: 20170829
